FAERS Safety Report 9627996 (Version 3)
Quarter: 2013Q4

REPORT INFORMATION
  Report Type: Spontaneous
  Country: JP (occurrence: JP)
  Receive Date: 20131016
  Receipt Date: 20131125
  Transmission Date: 20140711
  Serious: Yes (Other)
  Sender: FDA-Public Use
  Company Number: JP-SUCAMPO PHARMA AMERICAS, INC-SPI201300709

PATIENT
  Age: 27 Year
  Sex: Female

DRUGS (7)
  1. AMITIZA [Suspect]
     Indication: CONSTIPATION
     Dosage: 24 MG, BID
     Route: 048
     Dates: start: 20131001, end: 20131003
  2. GASMOTIN [Concomitant]
     Indication: CONSTIPATION
     Dosage: UNK
     Route: 048
     Dates: start: 20131001
  3. PURSENNID [Concomitant]
     Indication: CONSTIPATION
     Dosage: 24 MG, QD
     Route: 048
     Dates: start: 20131001
  4. CLARITH [Concomitant]
     Dosage: UNK
     Route: 065
     Dates: start: 20131002
  5. MUCOSOLVAN [Concomitant]
     Dosage: UNK
     Route: 065
     Dates: start: 20131002
  6. RESPLEN [Concomitant]
     Dosage: UNK
     Route: 065
     Dates: start: 20131002
  7. CLARITIN [Concomitant]
     Dosage: UNK
     Route: 065
     Dates: start: 20131001, end: 20131003

REACTIONS (5)
  - Cough [Recovered/Resolved]
  - Palpitations [Recovered/Resolved]
  - Dyspnoea [Recovered/Resolved]
  - Laryngeal discomfort [Recovered/Resolved]
  - Hypersensitivity [Recovered/Resolved]
